FAERS Safety Report 9187093 (Version 1)
Quarter: 2013Q1

REPORT INFORMATION
  Report Type: Spontaneous
  Country: US (occurrence: US)
  Receive Date: 20130325
  Receipt Date: 20130325
  Transmission Date: 20140127
  Serious: No
  Sender: FDA-Public Use
  Company Number: US-ASTRAZENECA-2013SE16171

PATIENT
  Age: 0 Year
  Sex: Male
  Weight: 9.1 kg

DRUGS (3)
  1. NEXIUM [Suspect]
     Indication: GASTROOESOPHAGEAL REFLUX DISEASE
     Route: 048
     Dates: start: 20130304, end: 20130305
  2. NEXIUM [Suspect]
     Indication: GASTROOESOPHAGEAL REFLUX DISEASE
     Route: 048
     Dates: start: 20130306
  3. ZANTAC [Suspect]
     Indication: GASTROOESOPHAGEAL REFLUX DISEASE
     Route: 048
     Dates: start: 20130304, end: 20130305

REACTIONS (4)
  - Vomiting projectile [Recovering/Resolving]
  - Urine output decreased [Recovered/Resolved]
  - Drug dispensing error [Unknown]
  - Incorrect dose administered [Recovering/Resolving]
